FAERS Safety Report 25775215 (Version 2)
Quarter: 2025Q3

REPORT INFORMATION
  Report Type: Report from Study
  Country: US (occurrence: US)
  Receive Date: 20250909
  Receipt Date: 20250916
  Transmission Date: 20251021
  Serious: Yes (Other)
  Sender: ABBVIE
  Company Number: US-ABBVIE-6448617

PATIENT
  Age: 55 Year
  Sex: Female
  Weight: 108.86 kg

DRUGS (5)
  1. CREON [Suspect]
     Active Substance: PANCRELIPASE AMYLASE\PANCRELIPASE LIPASE\PANCRELIPASE PROTEASE
     Indication: Pancreatic failure
     Route: 048
     Dates: start: 20250215
  2. CALCIUM [Concomitant]
     Active Substance: CALCIUM
     Indication: Osteoporosis
  3. VITAMIN D3 [Concomitant]
     Active Substance: CHOLECALCIFEROL
     Indication: Osteoporosis
  4. LIPITOR [Concomitant]
     Active Substance: ATORVASTATIN CALCIUM
     Indication: Blood cholesterol increased
  5. OXYBUTYNIN [Concomitant]
     Active Substance: OXYBUTYNIN
     Indication: Hypertonic bladder

REACTIONS (1)
  - Shoulder fracture [Recovering/Resolving]

NARRATIVE: CASE EVENT DATE: 20250801
